FAERS Safety Report 16360705 (Version 2)
Quarter: 2019Q2

REPORT INFORMATION
  Report Type: Spontaneous
  Country: FR (occurrence: FR)
  Receive Date: 20190528
  Receipt Date: 20190627
  Transmission Date: 20190711
  Serious: Yes (Hospitalization)
  Sender: FDA-Public Use
  Company Number: FR-ACCORD-118109

PATIENT
  Age: 79 Year
  Sex: Female
  Weight: 70 kg

DRUGS (17)
  1. OXYCODONE MYLAN LP [Suspect]
     Active Substance: OXYCODONE
     Indication: PAIN
     Dosage: STRENGTH: 10 MG
     Route: 048
     Dates: end: 20190123
  2. INVANZ [Suspect]
     Active Substance: ERTAPENEM SODIUM
     Indication: SEPSIS
     Route: 042
     Dates: start: 20190118, end: 20190126
  3. FLUCONAZOLE. [Concomitant]
     Active Substance: FLUCONAZOLE
  4. CANCIDAS [Suspect]
     Active Substance: CASPOFUNGIN ACETATE
     Indication: SEPSIS
     Dosage: STRENGTH: 70 MG
     Route: 042
     Dates: start: 20190118, end: 20190124
  5. HYDROCHLOROTHIAZIDE. [Concomitant]
     Active Substance: HYDROCHLOROTHIAZIDE
  6. TYGACIL [Concomitant]
     Active Substance: TIGECYCLINE
  7. ESIDREX [Suspect]
     Active Substance: HYDROCHLOROTHIAZIDE
     Indication: HYPERTENSION
     Route: 048
     Dates: end: 20190210
  8. MIANSERIN [Concomitant]
     Active Substance: MIANSERIN
  9. SPIRONOLACTONE. [Concomitant]
     Active Substance: SPIRONOLACTONE
  10. PARACETAMOL [Concomitant]
     Active Substance: ACETAMINOPHEN
  11. SPIRONOLACTONE. [Suspect]
     Active Substance: SPIRONOLACTONE
     Indication: HYPERTENSION
     Route: 048
     Dates: end: 20190210
  12. OXYNORMORO [Suspect]
     Active Substance: OXYCODONE HYDROCHLORIDE
     Indication: PAIN
     Route: 048
     Dates: end: 20190123
  13. IMOVANE [Suspect]
     Active Substance: ZOPICLONE
     Indication: SLEEP DISORDER
     Dosage: STRENGTH: 7.5 MG
     Route: 048
     Dates: end: 20190123
  14. DAPTOMYCIN ACCORD [Suspect]
     Active Substance: DAPTOMYCIN
     Indication: SEPSIS
     Route: 042
     Dates: start: 20190115, end: 20190127
  15. LOVENOX [Suspect]
     Active Substance: ENOXAPARIN SODIUM
     Indication: DEEP VEIN THROMBOSIS
     Dosage: LAST ADMINISTERED UPTO 10-FEB-2019
     Route: 058
     Dates: start: 20190104
  16. DALACINE [Concomitant]
     Active Substance: CLINDAMYCIN
  17. DIFFU K [Suspect]
     Active Substance: POTASSIUM CHLORIDE
     Indication: MINERAL SUPPLEMENTATION
     Route: 048
     Dates: start: 20190114, end: 20190123

REACTIONS (2)
  - Encephalopathy [Recovered/Resolved]
  - Haematoma [Not Recovered/Not Resolved]

NARRATIVE: CASE EVENT DATE: 20190121
